FAERS Safety Report 9854050 (Version 2)
Quarter: 2014Q1

REPORT INFORMATION
  Report Type: Spontaneous
  Country: GB (occurrence: GB)
  Receive Date: 20140129
  Receipt Date: 20140129
  Transmission Date: 20141002
  Serious: Yes (Other)
  Sender: FDA-Public Use
  Company Number: GB-PFIZER INC-2014025767

PATIENT
  Age: 34 Year
  Sex: Male

DRUGS (9)
  1. PHENYTOIN [Suspect]
     Indication: EPILEPSY
     Dosage: 100 MG, 4X/DAY
  2. PHENYTOIN [Suspect]
     Dosage: 100 MG, 3X/DAY
  3. PHENYTOIN [Suspect]
     Dosage: 100 MG, 8X/DAY
  4. PHENYTOIN [Suspect]
     Dosage: 400 MG, DAILY
  5. PHENOBARBITONE [Concomitant]
     Indication: EPILEPSY
     Dosage: 50 MG, 4X/DAY
  6. PHENOBARBITONE [Concomitant]
     Dosage: 50 MG, 3X/DAY
  7. PHENOBARBITONE [Concomitant]
     Dosage: 100 MG, 4X/DAY
  8. PHENOBARBITONE [Concomitant]
     Dosage: 400 MG, DAILY
  9. PARALDEHYDE [Concomitant]
     Indication: STATUS EPILEPTICUS
     Dosage: UNK, AT FREQUENT INTERVALS
     Route: 030

REACTIONS (2)
  - Granulocytopenia [Recovered/Resolved]
  - Candida infection [Recovering/Resolving]
